FAERS Safety Report 7941023-5 (Version None)
Quarter: 2011Q4

REPORT INFORMATION
  Report Type: 
  Country: None (occurrence: None)
  Receive Date: 20111128
  Receipt Date: 20111118
  Transmission Date: 20120403
  Serious: Yes (Other)
  Sender: FDA-Public Use
  Company Number: US-US-EMD SERONO, INC.-7020527

PATIENT
  Sex: Female
  Weight: 86 kg

DRUGS (7)
  1. NEURONTIN [Concomitant]
     Indication: MULTIPLE SCLEROSIS
  2. REBIF [Suspect]
     Indication: MULTIPLE SCLEROSIS
     Route: 058
     Dates: start: 20100407
  3. HYDROCHLOROTHIAZIDE [Concomitant]
     Indication: HYPERTENSION
  4. ANALGESIC [Concomitant]
     Indication: PREMEDICATION
  5. HYDROCHLOROTHIAZIDE [Concomitant]
     Indication: SWELLING
  6. DIOVAN [Concomitant]
     Indication: HYPERTENSION
  7. BACLOFEN [Concomitant]
     Indication: MULTIPLE SCLEROSIS

REACTIONS (2)
  - BRONCHITIS [None]
  - CHRONIC OBSTRUCTIVE PULMONARY DISEASE [None]
